FAERS Safety Report 5861496-1 (Version None)
Quarter: 2008Q3

REPORT INFORMATION
  Report Type: 
  Country: None (occurrence: None)
  Receive Date: 20080827
  Receipt Date: 20080603
  Transmission Date: 20090109
  Serious: No
  Sender: FDA-Public Use
  Company Number: US-ABBOTT-08P-163-0454594-00

PATIENT
  Sex: Female
  Weight: 90.8 kg

DRUGS (7)
  1. NIASPAN [Suspect]
     Indication: BLOOD CHOLESTEROL INCREASED
     Route: 048
     Dates: start: 20080520
  2. ACETYLSALICYLIC ACID SRT [Concomitant]
     Indication: DRUG USE FOR UNKNOWN INDICATION
     Route: 048
  3. INSULIN LISPRO [Concomitant]
     Indication: DIABETES MELLITUS
     Dosage: PER SLIDING SCALE BEFORE MEALS
     Route: 058
  4. LANTUS [Concomitant]
     Indication: DIABETES MELLITUS
     Route: 058
  5. EYE DROPS FOR GLAUCOMA [Concomitant]
     Indication: GLAUCOMA
     Route: 047
  6. LISINOPRIL [Concomitant]
     Indication: HYPERTENSION
     Route: 048
  7. LEVOTHYROXINE SODIUM [Concomitant]
     Indication: HYPOTHYROIDISM
     Route: 048

REACTIONS (1)
  - BLOOD GLUCOSE INCREASED [None]
